FAERS Safety Report 6202797-7 (Version None)
Quarter: 2009Q2

REPORT INFORMATION
  Report Type: 
  Country: None (occurrence: None)
  Receive Date: 20090526
  Receipt Date: 20090428
  Transmission Date: 20091009
  Serious: Yes (Hospitalization)
  Sender: FDA-Public Use
  Company Number: FR-PFIZER INC-2006110647

PATIENT
  Age: 45 Year

DRUGS (6)
  1. SUNITINIB MALATE [Suspect]
     Indication: METASTATIC RENAL CELL CARCINOMA
     Dosage: ONE/DAY - EVERY DAYS
     Route: 048
     Dates: start: 20051226
  2. ESOMEPRAZOLE MAGNESIUM [Concomitant]
     Route: 048
     Dates: start: 20060220
  3. OXYCODONE HCL [Concomitant]
     Route: 048
     Dates: start: 20060522, end: 20060706
  4. LEVOTHYROXINE SODIUM [Concomitant]
     Route: 048
     Dates: start: 20060406
  5. FERROUS SULFATE TAB [Concomitant]
     Route: 048
     Dates: start: 20060602
  6. DURAGESIC-100 [Concomitant]
     Route: 062
     Dates: start: 20060601

REACTIONS (1)
  - PERICARDIAL EFFUSION [None]
